FAERS Safety Report 16046483 (Version 1)
Quarter: 2019Q2

REPORT INFORMATION
  Report Type: Spontaneous
  Country: US (occurrence: US)
  Receive Date: 20190307
  Receipt Date: 20190307
  Transmission Date: 20190711
  Serious: Yes (Other)
  Sender: FDA-Public Use
  Company Number: None

PATIENT
  Age: 49 Year
  Sex: Female
  Weight: 58.91 kg

DRUGS (22)
  1. PROVENTIL HFA [Concomitant]
     Active Substance: ALBUTEROL SULFATE
  2. MULTIVITAMIN ADULT [Concomitant]
  3. TURMERIC [Concomitant]
     Active Substance: HERBALS\TURMERIC
  4. IRON [Concomitant]
     Active Substance: IRON
  5. LORAZEPAM. [Concomitant]
     Active Substance: LORAZEPAM
  6. VITAMIN E [Concomitant]
     Active Substance: .ALPHA.-TOCOPHEROL
  7. ZINC SULFATE [Concomitant]
     Active Substance: ZINC SULFATE\ZINC SULFATE ANHYDROUS
  8. COQ10 [Concomitant]
     Active Substance: UBIDECARENONE
  9. GABAPENTIN. [Concomitant]
     Active Substance: GABAPENTIN
  10. ACYCLOVIR. [Concomitant]
     Active Substance: ACYCLOVIR
  11. COLACE [Concomitant]
     Active Substance: DOCUSATE SODIUM
  12. VITAMIN D (CHOLECALCIFEROL) [Concomitant]
     Active Substance: CHOLECALCIFEROL
  13. HYDROMORPHONE HCL [Concomitant]
     Active Substance: HYDROMORPHONE HYDROCHLORIDE
  14. ASCOBIC ACID [Concomitant]
  15. CAPECITABINE. [Suspect]
     Active Substance: CAPECITABINE
     Indication: BREAST CANCER
     Route: 048
     Dates: start: 20190207
  16. VITAMIN B COMPLEX [Concomitant]
     Active Substance: CYANOCOBALAMIN\DEXPANTHENOL\NIACINAMIDE\PYRIDOXINE HYDROCHLORIDE\RIBOFLAVIN 5^-PHOSPHATE SODIUM\THIAMINE HYDROCHLORIDE\VITAMIN B COMPLEX
  17. PROBIOTIC ACIDOPHILUS [Concomitant]
     Active Substance: LACTOBACILLUS ACIDOPHILUS
  18. CYANOBALAMIN [Concomitant]
  19. HYDROCORTISONE. [Concomitant]
     Active Substance: HYDROCORTISONE
  20. TYLENOL [Concomitant]
     Active Substance: ACETAMINOPHEN
  21. OMEGA 3 [Concomitant]
     Active Substance: OMEGA-3 FATTY ACIDS
  22. LORATADINE. [Concomitant]
     Active Substance: LORATADINE

REACTIONS (1)
  - Full blood count decreased [None]
